FAERS Safety Report 5615386-X (Version None)
Quarter: 2008Q1

REPORT INFORMATION
  Report Type: 
  Country: None (occurrence: None)
  Receive Date: 20080131
  Receipt Date: 20080115
  Transmission Date: 20080703
  Serious: Yes (Hospitalization)
  Sender: FDA-Public Use
  Company Number: 2007JP005367

PATIENT
  Age: 68 Year
  Sex: Female
  Weight: 43 kg

DRUGS (15)
  1. PROGRAF [Suspect]
     Indication: LUPUS NEPHRITIS
     Dosage: 2 MG, UIDQD, ORAL
     Route: 048
     Dates: start: 20071017, end: 20071112
  2. MUCOSTA (REBAMIPIDE) [Concomitant]
  3. LANSOPRAZOLE [Concomitant]
  4. ORODISPERSABLE CR [Concomitant]
  5. KREMEZIN (CHARCOAL, ACTIVATED) [Concomitant]
  6. LASIX [Concomitant]
  7. TRICHLORMETHIAZIDE [Concomitant]
  8. ALFAROL (ALFACALCIDOL) [Concomitant]
  9. ALOSITOL [Concomitant]
  10. PREDNISONE [Concomitant]
  11. PERSANTIN [Concomitant]
  12. SODIUM BICARBONATE IN PLASTIC CONTAINER [Concomitant]
  13. ARGAMATE (CALCIUM POLYSTYRENE SULFONATE) [Concomitant]
  14. CALTAN [Concomitant]
  15. CLINORIL [Concomitant]

REACTIONS (2)
  - ALTERED STATE OF CONSCIOUSNESS [None]
  - ENCEPHALITIS HERPES [None]
